FAERS Safety Report 13011325 (Version 1)
Quarter: 2016Q4

REPORT INFORMATION
  Report Type: Spontaneous
  Country: IN (occurrence: IN)
  Receive Date: 20161209
  Receipt Date: 20161209
  Transmission Date: 20170207
  Serious: No
  Sender: FDA-Public Use
  Company Number: IN-LUPIN PHARMACEUTICALS INC.-E2B_00006409

PATIENT
  Sex: Male

DRUGS (3)
  1. PYZINA 1000 [Concomitant]
     Active Substance: PYRAZINAMIDE
     Indication: TUBERCULOSIS
     Route: 048
     Dates: start: 20160906
  2. COMBUNEX 800 [Concomitant]
     Active Substance: ETHAMBUTOL\ISONIAZID
     Indication: TUBERCULOSIS
     Route: 048
     Dates: start: 20160906
  3. RIFAMPICIN (R-CIN LU.) [Suspect]
     Active Substance: RIFAMPIN
     Indication: TUBERCULOSIS
     Route: 048
     Dates: start: 20160906

REACTIONS (1)
  - Pain in extremity [Unknown]
